FAERS Safety Report 8289126-2 (Version None)
Quarter: 2012Q2

REPORT INFORMATION
  Report Type: 
  Country: None (occurrence: None)
  Receive Date: 20120417
  Receipt Date: 20120408
  Transmission Date: 20120825
  Serious: Yes (Other)
  Sender: FDA-Public Use
  Company Number: JP-JNJFOC-20120104194

PATIENT
  Sex: Male
  Weight: 50 kg

DRUGS (10)
  1. TRANSAMINE CAP [Concomitant]
     Route: 048
     Dates: start: 20111114, end: 20111121
  2. GARENOXACIN MESYLATE [Suspect]
     Indication: PNEUMONIA BACTERIAL
     Route: 048
     Dates: start: 20110106
  3. ITRACONAZOLE [Suspect]
     Indication: BRONCHOPULMONARY ASPERGILLOSIS
     Route: 048
     Dates: start: 20111128, end: 20120104
  4. ZITHROMAX [Concomitant]
     Indication: MYCOPLASMA INFECTION
     Route: 048
     Dates: start: 20111212, end: 20111212
  5. GARENOXACIN MESYLATE [Suspect]
     Route: 048
     Dates: start: 20111226, end: 20120104
  6. ZITHROMAX [Concomitant]
     Route: 048
     Dates: start: 20111219, end: 20111219
  7. ADONA [Concomitant]
     Route: 048
     Dates: start: 20111114, end: 20111121
  8. ITRACONAZOLE [Suspect]
     Route: 048
     Dates: start: 20110201, end: 20110721
  9. GARENOXACIN MESYLATE [Suspect]
     Route: 048
     Dates: start: 20111114, end: 20111127
  10. DILTIAZEM HCL [Concomitant]
     Indication: HYPERTENSION
     Route: 048
     Dates: start: 20110901

REACTIONS (3)
  - PLEURAL EFFUSION [None]
  - HYPOKALAEMIA [None]
  - PNEUMONIA [None]
